FAERS Safety Report 8895389 (Version 1)
Quarter: 2012Q4

REPORT INFORMATION
  Report Type: 
  Country: NO (occurrence: NO)
  Receive Date: 20121108
  Receipt Date: 20121108
  Transmission Date: 20130627
  Serious: Yes (Death)
  Sender: FDA-Public Use
  Company Number: PHHY2012NO101256

PATIENT
  Age: 82 Year
  Sex: Female

DRUGS (8)
  1. METFORMIN [Suspect]
     Indication: DIABETES MELLITUS
     Dosage: 2.5 g, Daily
     Route: 048
  2. SIMVASTATIN [Concomitant]
     Dosage: 30 mg, QD
     Route: 048
  3. EPINAT [Concomitant]
     Dosage: 100 mg, QD
     Route: 048
  4. BURINEX [Concomitant]
     Dosage: 2 mg, QD
     Route: 048
  5. RENITEC COMP [Concomitant]
     Dosage: 1 DF, QD
     Route: 048
  6. SORBANGIL [Concomitant]
     Dosage: 20 mg, TID
     Route: 048
  7. LEVAXIN [Concomitant]
     Dosage: 100 mg, Daily (but 200 mg on mondays)
     Route: 048
  8. ZYLORIC [Concomitant]
     Dosage: 300 mg, QD
     Route: 048

REACTIONS (6)
  - Toxicity to various agents [Fatal]
  - Coma [Fatal]
  - Renal failure acute [Fatal]
  - Lactic acidosis [Fatal]
  - Somnolence [Fatal]
  - Hypotension [Fatal]
